FAERS Safety Report 5672796-2 (Version None)
Quarter: 2008Q1

REPORT INFORMATION
  Report Type: 
  Country: None (occurrence: None)
  Receive Date: 20080319
  Receipt Date: 20070820
  Transmission Date: 20080703
  Serious: No
  Sender: FDA-Public Use
  Company Number: US-KINGPHARMUSA00001-K200701047

PATIENT

DRUGS (1)
  1. ALTACE [Suspect]
     Dates: start: 20070601

REACTIONS (2)
  - COUGH [None]
  - SINUS DISORDER [None]
